FAERS Safety Report 15164621 (Version 1)
Quarter: 2018Q3

REPORT INFORMATION
  Report Type: Spontaneous
  Country: US (occurrence: US)
  Receive Date: 20180719
  Receipt Date: 20180719
  Transmission Date: 20181010
  Serious: Yes (Other)
  Sender: FDA-Public Use
  Company Number: US-UNICHEM PHARMACEUTICALS (USA) INC-UCM201807-000174

PATIENT

DRUGS (5)
  1. ACETAMINOPHEN. [Suspect]
     Active Substance: ACETAMINOPHEN
  2. VITAMINS [Suspect]
     Active Substance: VITAMINS
  3. QUETIAPINE. [Suspect]
     Active Substance: QUETIAPINE
  4. ASPIRIN. [Suspect]
     Active Substance: ASPIRIN
  5. BETAMETHASONE. [Concomitant]
     Active Substance: BETAMETHASONE
     Dosage: INITIATED 1 DAY PRIOR TO DELIVERY, WITH THE SECOND DOSE  GIVEN 3 HOURS BEFORE DELIVERY
     Route: 061

REACTIONS (2)
  - Foetal exposure during pregnancy [Unknown]
  - Bradycardia foetal [Unknown]
